FAERS Safety Report 6054409-3 (Version None)
Quarter: 2009Q1

REPORT INFORMATION
  Report Type: 
  Country: None (occurrence: None)
  Receive Date: 20090127
  Receipt Date: 20090119
  Transmission Date: 20090719
  Serious: Yes (Other)
  Sender: FDA-Public Use
  Company Number: PHHY2009MT01848

PATIENT
  Sex: Female

DRUGS (2)
  1. EXELON [Suspect]
     Indication: DEMENTIA
     Dosage: 4.6 MG, QD
     Route: 062
     Dates: start: 20081001
  2. EXELON [Suspect]
     Dosage: 9.5 MG, QD
     Route: 062
     Dates: end: 20081101

REACTIONS (3)
  - DIARRHOEA [None]
  - DISORIENTATION [None]
  - HALLUCINATION [None]
